FAERS Safety Report 24622138 (Version 2)
Quarter: 2025Q4

REPORT INFORMATION
  Report Type: Spontaneous
  Country: US (occurrence: US)
  Receive Date: 20241114
  Receipt Date: 20251231
  Transmission Date: 20260118
  Serious: No
  Sender: NOVARTIS
  Company Number: US-002147023-NVSC2024US219991

PATIENT
  Sex: Female

DRUGS (2)
  1. LETROZOLE [Suspect]
     Active Substance: LETROZOLE
     Indication: Product used for unknown indication
     Dosage: UNK
     Route: 065
     Dates: start: 201908
  2. IBRANCE [Suspect]
     Active Substance: PALBOCICLIB
     Indication: Breast cancer metastatic
     Dosage: 75 MG/ 3 WEEKS ON, 1 WEEK OFF
     Route: 065
     Dates: start: 201908

REACTIONS (6)
  - COVID-19 [Unknown]
  - Spinal stenosis [Unknown]
  - Fatigue [Not Recovered/Not Resolved]
  - Back injury [Unknown]
  - Back pain [Unknown]
  - Somnolence [Unknown]
